FAERS Safety Report 12971042 (Version 5)
Quarter: 2020Q4

REPORT INFORMATION
  Report Type: Spontaneous
  Country: US (occurrence: US)
  Receive Date: 20161123
  Receipt Date: 20201027
  Transmission Date: 20210113
  Serious: Yes (Other)
  Sender: FDA-Public Use
  Company Number: US-JAZZ-2016-US-018872

PATIENT
  Sex: Male

DRUGS (19)
  1. XYREM [Suspect]
     Active Substance: SODIUM OXYBATE
     Indication: CATAPLEXY
     Dosage: 3 G, BID
     Route: 048
     Dates: start: 201504, end: 201505
  2. HYDROCHLOROTHIAZIDE. [Concomitant]
     Active Substance: HYDROCHLOROTHIAZIDE
  3. KEPPRA [Concomitant]
     Active Substance: LEVETIRACETAM
  4. IBUPROFEN. [Concomitant]
     Active Substance: IBUPROFEN
  5. SILDENAFIL. [Concomitant]
     Active Substance: SILDENAFIL
  6. CYCLOBENZAPRINE. [Concomitant]
     Active Substance: CYCLOBENZAPRINE
  7. TRAMADOL. [Concomitant]
     Active Substance: TRAMADOL
  8. DICLOFENAC POTASSIUM. [Concomitant]
     Active Substance: DICLOFENAC POTASSIUM
  9. VIAGRA [Concomitant]
     Active Substance: SILDENAFIL CITRATE
  10. TOPAMAX [Concomitant]
     Active Substance: TOPIRAMATE
  11. XYREM [Suspect]
     Active Substance: SODIUM OXYBATE
     Dosage: 4.5 G, BID
     Route: 048
     Dates: start: 201505
  12. MOBIC [Concomitant]
     Active Substance: MELOXICAM
  13. LINZESS [Concomitant]
     Active Substance: LINACLOTIDE
  14. VALTREX [Concomitant]
     Active Substance: VALACYCLOVIR HYDROCHLORIDE
  15. ALBUTEROL SULFATE. [Concomitant]
     Active Substance: ALBUTEROL SULFATE
  16. ZOLOFT [Concomitant]
     Active Substance: SERTRALINE HYDROCHLORIDE
  17. XYREM [Suspect]
     Active Substance: SODIUM OXYBATE
     Indication: NARCOLEPSY
     Dosage: 2.25 G, BID
     Route: 048
     Dates: start: 201503, end: 201504
  18. MODAFINIL. [Concomitant]
     Active Substance: MODAFINIL
  19. ZYRTEC [Concomitant]
     Active Substance: CETIRIZINE HYDROCHLORIDE

REACTIONS (6)
  - Chronic obstructive pulmonary disease [Unknown]
  - Depression [Recovering/Resolving]
  - Suicidal ideation [Recovered/Resolved]
  - Hypertension [Recovered/Resolved]
  - Dizziness [Not Recovered/Not Resolved]
  - Anxiety [Unknown]

NARRATIVE: CASE EVENT DATE: 2016
